FAERS Safety Report 8561651-6 (Version None)
Quarter: 2012Q3

REPORT INFORMATION
  Report Type: 
  Country: None (occurrence: None)
  Receive Date: 20120727
  Receipt Date: 20120727
  Transmission Date: 20120928
  Serious: No
  Sender: FDA-Public Use
  Company Number: None

PATIENT
  Age: 63 Year
  Sex: Female
  Weight: 86.1834 kg

DRUGS (1)
  1. TRAMADOL HYDROCHLORIDE [Suspect]
     Indication: ARTHRITIS
     Dosage: 1 TABLET EVERY 4 HRS. PO
     Route: 048
     Dates: start: 20120723, end: 20120726

REACTIONS (10)
  - CONSTIPATION [None]
  - SKIN DISORDER [None]
  - TONGUE DISORDER [None]
  - INSOMNIA [None]
  - DRUG INEFFECTIVE [None]
  - DYSKINESIA [None]
  - CONDITION AGGRAVATED [None]
  - DEPRESSION [None]
  - NERVOUSNESS [None]
  - SALIVARY HYPERSECRETION [None]
